FAERS Safety Report 7075828-2 (Version None)
Quarter: 2010Q4

REPORT INFORMATION
  Report Type: 
  Country: None (occurrence: None)
  Receive Date: 20101101
  Receipt Date: 20101020
  Transmission Date: 20110411
  Serious: No
  Sender: FDA-Public Use
  Company Number: US-BIOGENIDEC-2010BI033489

PATIENT
  Sex: Female

DRUGS (1)
  1. TYSABRI [Suspect]
     Indication: MULTIPLE SCLEROSIS
     Route: 042
     Dates: start: 20090928, end: 20100901

REACTIONS (7)
  - ASTHENIA [None]
  - DECREASED APPETITE [None]
  - DRUG INEFFECTIVE [None]
  - GAIT DISTURBANCE [None]
  - MULTIPLE SCLEROSIS [None]
  - MUSCULAR WEAKNESS [None]
  - WEIGHT DECREASED [None]
